FAERS Safety Report 19243347 (Version 2)
Quarter: 2021Q2

REPORT INFORMATION
  Report Type: Spontaneous
  Country: US (occurrence: US)
  Receive Date: 20210511
  Receipt Date: 20210520
  Transmission Date: 20210717
  Serious: Yes (Hospitalization, Other)
  Sender: FDA-Public Use
  Company Number: US-INCYTE CORPORATION-2021IN004035

PATIENT

DRUGS (1)
  1. JAKAFI [Suspect]
     Active Substance: RUXOLITINIB
     Indication: PLASMA CELL MYELOMA
     Dosage: 10 MILLIGRAM, BID
     Route: 048
     Dates: start: 20201106

REACTIONS (8)
  - Feeling hot [Unknown]
  - Vomiting [Unknown]
  - Erythema [Unknown]
  - Cellulitis [Unknown]
  - Infection [Unknown]
  - Off label use [Unknown]
  - Product dose omission issue [Unknown]
  - Transient ischaemic attack [Unknown]

NARRATIVE: CASE EVENT DATE: 20201106
